FAERS Safety Report 11893286 (Version 1)
Quarter: 2016Q1

REPORT INFORMATION
  Report Type: Report from Study
  Country: TW (occurrence: TW)
  Receive Date: 20160106
  Receipt Date: 20160106
  Transmission Date: 20160526
  Serious: Yes (Other)
  Sender: FDA-Public Use
  Company Number: TW-MYLANLABS-2016M1000044

PATIENT

DRUGS (6)
  1. TEGAFUR W/URACIL [Suspect]
     Active Substance: TEGAFUR\URACIL
     Indication: LIP AND/OR ORAL CAVITY CANCER
     Dosage: 1 DOSAGE FORM THRICE DAILY
     Route: 065
  2. SIROLIMUS. [Suspect]
     Active Substance: SIROLIMUS
     Indication: LIP AND/OR ORAL CAVITY CANCER
     Dosage: 2 MG/DAY
     Route: 065
  3. HYDROXYCHLOROQUINE [Suspect]
     Active Substance: HYDROXYCHLOROQUINE
     Indication: LIP AND/OR ORAL CAVITY CANCER
     Dosage: 400 MG/DAY
     Route: 065
  4. CYCLOPHOSPHAMIDE. [Suspect]
     Active Substance: CYCLOPHOSPHAMIDE
     Indication: LIP AND/OR ORAL CAVITY CANCER
     Dosage: 50MG EVERY OTHER DAY
     Route: 048
  5. METHOTREXATE [Suspect]
     Active Substance: METHOTREXATE
     Indication: LIP AND/OR ORAL CAVITY CANCER
     Dosage: 50MG EVERY 2 WEEKS
     Route: 048
  6. CISPLATIN. [Suspect]
     Active Substance: CISPLATIN
     Indication: LIP AND/OR ORAL CAVITY CANCER
     Dosage: 30 MG/M 2 EVERY 2 WEEKS
     Route: 042

REACTIONS (1)
  - Cardiotoxicity [Recovered/Resolved]
